FAERS Safety Report 10177447 (Version 1)
Quarter: 2014Q2

REPORT INFORMATION
  Report Type: Report from Study
  Country: IT (occurrence: IT)
  Receive Date: 20140516
  Receipt Date: 20140516
  Transmission Date: 20141212
  Serious: Yes (Hospitalization)
  Sender: FDA-Public Use
  Company Number: PHHO2014IT006791

PATIENT
  Sex: 0

DRUGS (2)
  1. AMN107 [Suspect]
     Indication: CHROMOSOME ANALYSIS ABNORMAL
     Dosage: 300 MG, BID
     Route: 048
     Dates: start: 20131024, end: 20140506
  2. AMN107 [Suspect]
     Indication: CHRONIC MYELOID LEUKAEMIA

REACTIONS (1)
  - Cholecystitis [Not Recovered/Not Resolved]
